FAERS Safety Report 6622593-6 (Version None)
Quarter: 2010Q1

REPORT INFORMATION
  Report Type: 
  Country: None (occurrence: None)
  Receive Date: 20100310
  Receipt Date: 20100111
  Transmission Date: 20100710
  Serious: No
  Sender: FDA-Public Use
  Company Number: US-BIOGENIDEC-2010BI001363

PATIENT
  Sex: Female

DRUGS (1)
  1. AVONEX [Suspect]
     Route: 030
     Dates: start: 19980101, end: 20000101

REACTIONS (5)
  - AGEUSIA [None]
  - INFLUENZA LIKE ILLNESS [None]
  - INJECTION SITE ERYTHEMA [None]
  - INJECTION SITE INFLAMMATION [None]
  - MULTIPLE SCLEROSIS RELAPSE [None]
